FAERS Safety Report 18116258 (Version 2)
Quarter: 2020Q3

REPORT INFORMATION
  Report Type: Spontaneous
  Country: US (occurrence: US)
  Receive Date: 20200806
  Receipt Date: 20200814
  Transmission Date: 20201103
  Serious: Yes (Other)
  Sender: FDA-Public Use
  Company Number: US-TEVA-2020-US-1809984

PATIENT
  Sex: Female

DRUGS (2)
  1. QUETIAPINE. [Suspect]
     Active Substance: QUETIAPINE
     Indication: PSYCHOTIC DISORDER
  2. QUETIAPINE. [Suspect]
     Active Substance: QUETIAPINE
     Indication: BIPOLAR I DISORDER
     Dosage: 600 MILLIGRAM DAILY; AT NIGHTTIME
     Route: 065

REACTIONS (6)
  - Somnolence [Recovered/Resolved]
  - Emotional disorder [Recovered/Resolved]
  - Feeling abnormal [Recovered/Resolved]
  - Hypersomnia [Recovered/Resolved]
  - Impaired quality of life [Recovered/Resolved]
  - Depression suicidal [Recovered/Resolved]
